FAERS Safety Report 6191805-8 (Version None)
Quarter: 2009Q2

REPORT INFORMATION
  Report Type: 
  Country: None (occurrence: None)
  Receive Date: 20090515
  Receipt Date: 20090423
  Transmission Date: 20091009
  Serious: Yes (Hospitalization)
  Sender: FDA-Public Use
  Company Number: US-JNJFOC-20090503021

PATIENT
  Sex: Female
  Weight: 47 kg

DRUGS (5)
  1. DOXIL [Suspect]
     Indication: MULTIPLE MYELOMA
     Route: 042
  2. CCI-779 [Suspect]
     Indication: MULTIPLE MYELOMA
     Route: 065
  3. VELCADE [Suspect]
     Indication: MULTIPLE MYELOMA
     Route: 065
  4. ZOVIRAX [Concomitant]
     Route: 065
  5. AREDIA [Concomitant]
     Route: 042

REACTIONS (6)
  - EJECTION FRACTION DECREASED [None]
  - HYPOXIA [None]
  - NEUTROPENIA [None]
  - RECTAL HAEMORRHAGE [None]
  - SEPSIS [None]
  - VENTRICULAR HYPOKINESIA [None]
